FAERS Safety Report 16223597 (Version 1)
Quarter: 2019Q2

REPORT INFORMATION
  Report Type: Spontaneous
  Country: FR (occurrence: FR)
  Receive Date: 20190422
  Receipt Date: 20190422
  Transmission Date: 20190711
  Serious: Yes (Hospitalization)
  Sender: FDA-Public Use
  Company Number: PHHY2019FR088195

PATIENT
  Age: 52 Year
  Sex: Female

DRUGS (3)
  1. FLECAINE [Suspect]
     Active Substance: FLECAINIDE
     Indication: VENTRICULAR TACHYCARDIA
     Dosage: UNK
     Route: 048
  2. MONO TILDIEM LP [Suspect]
     Active Substance: DILTIAZEM HYDROCHLORIDE
     Indication: VENTRICULAR TACHYCARDIA
     Dosage: 1 DF, QD
     Route: 048
     Dates: end: 20181217
  3. BISOPROLOL [Suspect]
     Active Substance: BISOPROLOL
     Indication: PRODUCT USED FOR UNKNOWN INDICATION
     Route: 048

REACTIONS (1)
  - Arrhythmia [Recovered/Resolved]

NARRATIVE: CASE EVENT DATE: 20181217
